FAERS Safety Report 4520424-1 (Version None)
Quarter: 2004Q4

REPORT INFORMATION
  Report Type: 
  Country: None (occurrence: None)
  Receive Date: 20041206
  Receipt Date: 20041206
  Transmission Date: 20050328
  Serious: Yes (Hospitalization)
  Sender: FDA-Public Use
  Company Number: None

PATIENT
  Age: 76 Year
  Sex: Male
  Weight: 88.905 kg

DRUGS (1)
  1. GEMCITABINE [Suspect]
     Indication: PANCREATIC CARCINOMA
     Dosage: 1500 MG/M2 IV OVER 150 MIN Q WEEK X 3 WEEKS FOLLOWED BY 1WEEK REST - TX UNTIL DZ PROGRESSIO
     Route: 042

REACTIONS (1)
  - PNEUMONIA [None]
